FAERS Safety Report 7643740-3 (Version None)
Quarter: 2011Q3

REPORT INFORMATION
  Report Type: 
  Country: None (occurrence: None)
  Receive Date: 20110722
  Receipt Date: 20110706
  Transmission Date: 20111222
  Serious: Yes (Other)
  Sender: FDA-Public Use
  Company Number: TPA2011A03805

PATIENT
  Age: 4 Month

DRUGS (2)
  1. PREVACID [Suspect]
     Dosage: 15 MG, 1 IN 1 D, ORAL
     Route: 048
  2. UNKNOWN PEDIATRIC IMMUNIZATIONS [Suspect]
     Indication: IMMUNISATION

REACTIONS (1)
  - CONVULSION [None]
